FAERS Safety Report 4265737-6 (Version None)
Quarter: 2004Q1

REPORT INFORMATION
  Report Type: 
  Country: None (occurrence: None)
  Receive Date: 20040106
  Receipt Date: 20031224
  Transmission Date: 20041129
  Serious: Yes (Hospitalization)
  Sender: FDA-Public Use
  Company Number: US-JNJFOC-20031205344

PATIENT
  Age: 71 Year
  Sex: Female

DRUGS (10)
  1. INFLIXIMAB (INFLIXIMAB, RECOMBINANT) LYOPHILIZED POWDER [Suspect]
     Indication: RHEUMATOID ARTHRITIS
     Dosage: INTRAVENOUS
     Route: 042
     Dates: end: 20010109
  2. INFLIXIMAB (INFLIXIMAB, RECOMBINANT) LYOPHILIZED POWDER [Suspect]
     Indication: RHEUMATOID ARTHRITIS
     Dosage: INTRAVENOUS
     Route: 042
     Dates: start: 20010125
  3. PROTONIX [Concomitant]
  4. XANAX [Concomitant]
  5. MIRALAX [Concomitant]
  6. MIACALCIN [Concomitant]
  7. ALREX 2% (ALL OTHER THERAPEUTIC PRODUCTS) [Concomitant]
  8. ULTRACET [Concomitant]
  9. MEDROL [Concomitant]
  10. ALAMAST .1 EYEDROPS (ALL OTHER THERAPEUTIC PRODUCTS) [Concomitant]

REACTIONS (1)
  - BREAST CANCER [None]
